FAERS Safety Report 5918913-8 (Version None)
Quarter: 2008Q4

REPORT INFORMATION
  Report Type: 
  Country: None (occurrence: None)
  Receive Date: 20081015
  Receipt Date: 20081006
  Transmission Date: 20090506
  Serious: Yes (Death, Hospitalization)
  Sender: FDA-Public Use
  Company Number: GB-AMGEN-UK305819

PATIENT
  Sex: Male
  Weight: 65 kg

DRUGS (12)
  1. MIMPARA [Suspect]
     Indication: HYPERPARATHYROIDISM SECONDARY
     Dates: start: 20071228, end: 20080306
  2. CALCITONIN [Concomitant]
     Route: 048
  3. CITALOPRAM HYDROBROMIDE [Concomitant]
     Route: 048
  4. OMEPRAZOLE [Concomitant]
     Route: 048
  5. ACETAMINOPHEN [Concomitant]
     Route: 048
  6. SIMVASTATIN [Concomitant]
     Route: 048
  7. RAMIPRIL [Concomitant]
     Route: 048
  8. ASPIRIN [Concomitant]
     Route: 048
  9. EPOETIN ALFA [Concomitant]
     Route: 042
  10. VENOFER [Concomitant]
     Route: 042
  11. UNSPECIFIED NUTRITIONAL SUPPLEMENT [Concomitant]
  12. LANTUS [Concomitant]
     Route: 058

REACTIONS (4)
  - MALNUTRITION [None]
  - PANCREATITIS ACUTE [None]
  - PERIPHERAL VASCULAR DISORDER [None]
  - WEIGHT DECREASED [None]
